FAERS Safety Report 7561594-0 (Version None)
Quarter: 2011Q2

REPORT INFORMATION
  Report Type: 
  Country: None (occurrence: None)
  Receive Date: 20110621
  Receipt Date: 20101006
  Transmission Date: 20111010
  Serious: No
  Sender: FDA-Public Use
  Company Number: US-ASTRAZENECA-2010SE47398

PATIENT
  Age: 69 Year
  Sex: Female

DRUGS (1)
  1. PULMICORT FLEXHALER [Suspect]
     Indication: COUGH
     Dosage: 180 UG THREE PUFFS TWICE A DAY
     Route: 055

REACTIONS (3)
  - DRUG INEFFECTIVE [None]
  - COUGH [None]
  - DRUG DOSE OMISSION [None]
